FAERS Safety Report 6743372-5 (Version None)
Quarter: 2010Q2

REPORT INFORMATION
  Report Type: 
  Country: None (occurrence: None)
  Receive Date: 20100525
  Receipt Date: 20100514
  Transmission Date: 20101027
  Serious: Yes (Hospitalization)
  Sender: FDA-Public Use
  Company Number: DSJ-2010-05076

PATIENT
  Age: 74 Year
  Sex: Male
  Weight: 77 kg

DRUGS (7)
  1. OLMESARTAN MEDOXOMIL [Suspect]
     Indication: HYPERTENSION
     Dosage: 20 MG (20 MG, 1 IN 1 D), PER ORAL
     Route: 048
     Dates: start: 20100115, end: 20100318
  2. TRICHLORMETHIAZIDE TAB [Suspect]
     Indication: HYPERTENSION
     Dosage: 1 MG (1 MG, 1 IN 1 D), PER ORAL
     Route: 048
     Dates: start: 20100115, end: 20100318
  3. PIRFENIDONE [Suspect]
     Indication: IDIOPATHIC PULMONARY FIBROSIS
     Dosage: 1800 MG (600 MG, 3 IN 1 D), PER ORAL
     Route: 048
     Dates: start: 20090514, end: 20100318
  4. GLIMICRON (GLICLAZIDE) (TABLET) (GLICLAZIDE) [Concomitant]
  5. ACTOS [Concomitant]
  6. BASEN (VOGLIBOSE) (TABLET) (VOGLIBOSE) [Concomitant]
  7. AMLODIPINE BESYLATE [Concomitant]

REACTIONS (4)
  - CONDITION AGGRAVATED [None]
  - IDIOPATHIC PULMONARY FIBROSIS [None]
  - LYMPHOCYTE STIMULATION TEST POSITIVE [None]
  - SKIN TEST POSITIVE [None]
